FAERS Safety Report 5650423-8 (Version None)
Quarter: 2008Q1

REPORT INFORMATION
  Report Type: 
  Country: None (occurrence: None)
  Receive Date: 20080304
  Receipt Date: 20080304
  Transmission Date: 20080703
  Serious: Yes (Hospitalization)
  Sender: FDA-Public Use
  Company Number: None

PATIENT
  Age: 41 Year
  Sex: Female
  Weight: 74.6167 kg

DRUGS (4)
  1. NUVARING [Suspect]
     Dosage: VAG
     Route: 067
  2. MAXALT [Concomitant]
  3. LEXAPRO [Concomitant]
  4. CLARITIN [Concomitant]

REACTIONS (1)
  - PULMONARY EMBOLISM [None]
